FAERS Safety Report 6158630-5 (Version None)
Quarter: 2009Q2

REPORT INFORMATION
  Report Type: 
  Country: None (occurrence: None)
  Receive Date: 20090415
  Receipt Date: 20090407
  Transmission Date: 20091009
  Serious: Yes (Hospitalization)
  Sender: FDA-Public Use
  Company Number: WAES 0904USA01126

PATIENT
  Sex: 0

DRUGS (5)
  1. COZAAR [Suspect]
     Indication: DIABETIC NEPHROPATHY
     Dosage: 50 MG/DAILY/PO
     Route: 048
  2. ALBUTEROL [Concomitant]
  3. ATENOLOL [Concomitant]
  4. GLIPIZIDE [Concomitant]
  5. WARFARIN SODIUM [Concomitant]

REACTIONS (2)
  - CARDIAC FAILURE CONGESTIVE [None]
  - CONDITION AGGRAVATED [None]
